FAERS Safety Report 8977463 (Version 2)
Quarter: 2013Q1

REPORT INFORMATION
  Report Type: Report from Study
  Country: US (occurrence: US)
  Receive Date: 20121219
  Receipt Date: 20130322
  Transmission Date: 20140127
  Serious: Yes (Death)
  Sender: FDA-Public Use
  Company Number: US-PFIZER INC-2012317023

PATIENT
  Age: 78 Year
  Sex: Male
  Weight: 76.83 kg

DRUGS (2)
  1. PD-332,991 [Suspect]
     Indication: COLON CANCER METASTATIC
     Dosage: 100 MG, 7 DAYS ON/7 DAYS OFF
     Route: 048
     Dates: start: 20121106, end: 20121209
  2. FLUOROURACIL [Suspect]
     Indication: COLON CANCER METASTATIC
     Dosage: 2400 MG/M2, EVERY 2 WEEKS
     Route: 042
     Dates: start: 20121113, end: 20121129

REACTIONS (1)
  - Syncope [Fatal]
